FAERS Safety Report 6124356-7 (Version None)
Quarter: 2009Q1

REPORT INFORMATION
  Report Type: 
  Country: None (occurrence: None)
  Receive Date: 20090319
  Receipt Date: 20090313
  Transmission Date: 20090719
  Serious: Yes (Other)
  Sender: FDA-Public Use
  Company Number: US-CELGENEUS-163-21880-09021015

PATIENT
  Sex: Female

DRUGS (2)
  1. REVLIMID [Suspect]
     Route: 048
     Dates: start: 20081001
  2. FLUDARA [Suspect]
     Indication: DRUG USE FOR UNKNOWN INDICATION
     Route: 065

REACTIONS (6)
  - BLOOD COUNT ABNORMAL [None]
  - DEAFNESS [None]
  - DEAFNESS UNILATERAL [None]
  - EAR HAEMORRHAGE [None]
  - EAR INFECTION [None]
  - PLATELET COUNT DECREASED [None]
